FAERS Safety Report 5029183-X (Version None)
Quarter: 2006Q2

REPORT INFORMATION
  Report Type: 
  Country: None (occurrence: None)
  Receive Date: 20060613
  Receipt Date: 20060608
  Transmission Date: 20061013
  Serious: Yes (Death)
  Sender: FDA-Public Use
  Company Number: SEWYE712809JUN06

PATIENT
  Age: 53 Year
  Sex: Male

DRUGS (3)
  1. EFEXOR DEPOT         (VELAFAXINE HYDROCHLORIDE ER) [Suspect]
     Dosage: 150 MG IN THE MORNING AND 75 MG IN THE EVENING; ORAL
     Route: 048
  2. LAMICTAL [Suspect]
  3. REMERON [Suspect]
     Dosage: 30 MG 1X PER 1 DAY;

REACTIONS (1)
  - SUDDEN DEATH [None]
